FAERS Safety Report 7515941-6 (Version None)
Quarter: 2011Q2

REPORT INFORMATION
  Report Type: 
  Country: None (occurrence: None)
  Receive Date: 20110526
  Receipt Date: 20110526
  Transmission Date: 20111010
  Serious: No
  Sender: FDA-Public Use
  Company Number: None

PATIENT
  Age: 71 Year
  Sex: Female

DRUGS (1)
  1. TACROLIMUS [Suspect]
     Indication: RENAL TRANSPLANT
     Dosage: ONE CAPSULE TWICE DAILY
     Dates: start: 20110220, end: 20110324

REACTIONS (3)
  - TOXICITY TO VARIOUS AGENTS [None]
  - FATIGUE [None]
  - TREMOR [None]
